FAERS Safety Report 5844688-7 (Version None)
Quarter: 2008Q3

REPORT INFORMATION
  Report Type: 
  Country: None (occurrence: None)
  Receive Date: 20080812
  Receipt Date: 20080804
  Transmission Date: 20090109
  Serious: Yes (Death, Hospitalization)
  Sender: FDA-Public Use
  Company Number: 2008SP016011

PATIENT
  Age: 19 Year
  Sex: Female

DRUGS (12)
  1. CELESTAMINE TAB [Suspect]
     Indication: MALAISE
     Dosage: ; PO
     Route: 048
     Dates: start: 20070925
  2. CELESTAMINE TAB [Suspect]
     Indication: PYREXIA
     Dosage: ; PO
     Route: 048
     Dates: start: 20070925
  3. MEFENAMIC ACID [Suspect]
     Indication: MALAISE
     Dosage: ; PO
     Route: 048
     Dates: start: 20070925
  4. MEFENAMIC ACID [Suspect]
     Indication: PYREXIA
     Dosage: ; PO
     Route: 048
     Dates: start: 20070925
  5. TRANSAMIN (TRANEXAMIC ACID) [Suspect]
     Indication: MALAISE
     Dosage: ; PO
     Route: 048
     Dates: start: 20070925
  6. TRANSAMIN (TRANEXAMIC ACID) [Suspect]
     Indication: PYREXIA
     Dosage: ; PO
     Route: 048
     Dates: start: 20070925
  7. MUCOSTA (REBAMIPIDE) [Suspect]
     Indication: MALAISE
     Dosage: ; PO
     Route: 048
     Dates: start: 20070925
  8. MUCOSTA (REBAMIPIDE) [Suspect]
     Indication: PYREXIA
     Dosage: ; PO
     Route: 048
     Dates: start: 20070925
  9. CLARITHROMYCIN [Suspect]
     Indication: MALAISE
     Dosage: ; PO
     Route: 048
     Dates: start: 20070925
  10. CLARITHROMYCIN [Suspect]
     Indication: PYREXIA
     Dosage: ; PO
     Route: 048
     Dates: start: 20070925
  11. SULPERAZON (CEFOPERAZONE W/SULBACTAM) [Suspect]
     Indication: PYREXIA
     Dosage: ; INDRP
     Route: 041
     Dates: start: 20071002
  12. CIPROFLOXACIN HCL [Suspect]
     Indication: PYREXIA
     Dosage: ; PO
     Route: 048
     Dates: start: 20071002

REACTIONS (9)
  - BRAIN OEDEMA [None]
  - CHRONIC HEPATIC FAILURE [None]
  - DIABETES INSIPIDUS [None]
  - ENCEPHALOPATHY [None]
  - HAEMODIALYSIS [None]
  - HEPATITIS FULMINANT [None]
  - LIVER TRANSPLANT [None]
  - PUPILLARY REFLEX IMPAIRED [None]
  - RESPIRATORY ARREST [None]
